FAERS Safety Report 7821555-0 (Version None)
Quarter: 2011Q4

REPORT INFORMATION
  Report Type: 
  Country: None (occurrence: None)
  Receive Date: 20111018
  Receipt Date: 20101203
  Transmission Date: 20120403
  Serious: No
  Sender: FDA-Public Use
  Company Number: US-ASTRAZENECA-2010SE57471

PATIENT
  Age: 64 Year
  Sex: Female

DRUGS (4)
  1. ATACAND HCT [Suspect]
     Route: 048
     Dates: start: 20080101
  2. RHINOCORT [Suspect]
     Route: 045
     Dates: start: 20080101
  3. SYMBICORT [Suspect]
     Route: 055
     Dates: start: 20080101
  4. NEXIUM [Suspect]
     Route: 048

REACTIONS (2)
  - NASOPHARYNGITIS [None]
  - DIABETES MELLITUS [None]
